FAERS Safety Report 14220434 (Version 1)
Quarter: 2017Q4

REPORT INFORMATION
  Report Type: Spontaneous
  Country: FR (occurrence: FR)
  Receive Date: 20171124
  Receipt Date: 20171124
  Transmission Date: 20180321
  Serious: Yes (Hospitalization)
  Sender: FDA-Public Use
  Company Number: FR-BIOVITRUM-2013FR0067

PATIENT
  Age: 2 Year
  Sex: Female
  Weight: 13.54 kg

DRUGS (7)
  1. KINERET [Suspect]
     Active Substance: ANAKINRA
     Indication: STILL^S DISEASE
     Route: 058
     Dates: start: 20120528, end: 20120703
  2. KARDEGIC [Concomitant]
     Active Substance: ASPIRIN DL-LYSINE
  3. CORTICOTHERAPY [Concomitant]
     Active Substance: CORTICOSTEROID NOS
  4. ADVIL [Concomitant]
     Active Substance: IBUPROFEN
     Indication: STILL^S DISEASE
     Dates: start: 20120613, end: 20120703
  5. DOLIPRANE [Suspect]
     Active Substance: ACETAMINOPHEN
     Indication: STILL^S DISEASE
     Dates: start: 201206, end: 20120703
  6. CORTICOSTEROIDS [Concomitant]
     Active Substance: CORTICOSTEROID NOS
     Dosage: 1 MG/KG, 1 IN 1 D
     Route: 048
  7. SOLUPRED [Concomitant]
     Active Substance: PREDNISOLONE
     Indication: STILL^S DISEASE
     Dates: start: 20120518

REACTIONS (1)
  - Hepatitis cholestatic [Recovered/Resolved]

NARRATIVE: CASE EVENT DATE: 20120703
